FAERS Safety Report 6012883-2 (Version None)
Quarter: 2008Q4

REPORT INFORMATION
  Report Type: 
  Country: None (occurrence: None)
  Receive Date: 20081219
  Receipt Date: 20081215
  Transmission Date: 20090506
  Serious: Yes (Hospitalization)
  Sender: FDA-Public Use
  Company Number: CN-BRISTOL-MYERS SQUIBB COMPANY-14443725

PATIENT
  Age: 45 Year
  Sex: Male

DRUGS (7)
  1. CHOLESTYRAMINE [Suspect]
  2. ISOSORBIDE MONONITRATE [Suspect]
  3. ASPIRIN [Suspect]
  4. FELODIPINE [Suspect]
  5. FRUSEMIDE [Suspect]
  6. METHYLDOPA [Suspect]
  7. SIMVASTATIN [Suspect]

REACTIONS (6)
  - ACIDOSIS HYPERCHLORAEMIC [None]
  - BLOOD BICARBONATE DECREASED [None]
  - BLOOD CHLORIDE INCREASED [None]
  - BLOOD CREATININE INCREASED [None]
  - BLOOD POTASSIUM INCREASED [None]
  - DRUG INTOLERANCE [None]
